FAERS Safety Report 8671680 (Version 2)
Quarter: 2012Q4

REPORT INFORMATION
  Report Type: 
  Country: JP (occurrence: JP)
  Receive Date: 20120718
  Receipt Date: 20121109
  Transmission Date: 20130627
  Serious: No
  Sender: FDA-Public Use
  Company Number: JP-ELI_LILLY_AND_COMPANY-JP201207001809

PATIENT
  Age: 17 None
  Sex: Male
  Weight: 56 kg

DRUGS (4)
  1. STRATTERA [Suspect]
     Indication: ATTENTION DEFICIT/HYPERACTIVITY DISORDER
     Dosage: 10 mg, bid
     Route: 048
     Dates: start: 20120531, end: 20120606
  2. STRATTERA [Suspect]
     Dosage: 30 mg, qd
     Route: 048
     Dates: start: 20120607, end: 20120613
  3. STRATTERA [Suspect]
     Dosage: 25 mg, bid
     Route: 048
     Dates: start: 20120614, end: 20120627
  4. STRATTERA [Suspect]
     Dosage: 30 mg, bid
     Route: 048
     Dates: start: 20120628, end: 20120703

REACTIONS (3)
  - Oesophageal ulcer [Recovered/Resolved]
  - Pyrexia [Recovered/Resolved]
  - Diarrhoea [Recovered/Resolved]
